FAERS Safety Report 17022441 (Version 3)
Quarter: 2020Q1

REPORT INFORMATION
  Report Type: Spontaneous
  Country: GR (occurrence: GR)
  Receive Date: 20191112
  Receipt Date: 20200129
  Transmission Date: 20200409
  Serious: Yes (Other)
  Sender: FDA-Public Use
  Company Number: GR-MYLANLABS-2019M1107104

PATIENT
  Age: 38 Year
  Sex: Female

DRUGS (11)
  1. IFOSFAMIDE. [Suspect]
     Active Substance: IFOSFAMIDE
     Dosage: 3 G/M2, DAY 1-3, INTRAVENOUS 20% OF IFOSFAMIDE DOSE
     Route: 042
  2. FLUCONAZOLE. [Concomitant]
     Active Substance: FLUCONAZOLE
     Indication: PROPHYLAXIS
     Dosage: 50 MILLIGRAM, QD
     Route: 065
  3. ETOPOSIDE. [Suspect]
     Active Substance: ETOPOSIDE
     Indication: EWING^S SARCOMA
     Dosage: 150 MG/M2, DAY 1-3
     Route: 065
  4. G-CSF [Concomitant]
     Active Substance: GRANULOCYTE COLONY-STIMULATING FACTOR NOS
     Dosage: 48 MU, DAY 7-14
  5. DOXORUBICIN [Suspect]
     Active Substance: DOXORUBICIN
     Indication: EWING^S SARCOMA
     Dosage: 20 MG/M2, DAY 1-3
     Route: 065
  6. COTRIMOXAZOLE [Concomitant]
     Active Substance: SULFAMETHOXAZOLE\TRIMETHOPRIM
     Indication: PROPHYLAXIS
     Dosage: 480 MG, DAY 1-21
     Route: 065
  7. UROMITEXAN [Suspect]
     Active Substance: MESNA
     Indication: EWING^S SARCOMA
     Dosage: CYCLE DAY 1-3 (INTRAVENOUS 20% OF IFOSFAMIDE DOSE, PER OS 40% OF IFOSFAMIDE DOSE 2 AND 8 H
     Route: 048
  8. VINCRISTINE SULFATE. [Suspect]
     Active Substance: VINCRISTINE SULFATE
     Indication: EWING^S SARCOMA
     Dosage: 1.5 MG/M2, DAY 1
     Route: 065
  9. CIPROFLOXACIN. [Concomitant]
     Active Substance: CIPROFLOXACIN
     Indication: PROPHYLAXIS
     Dosage: 250 MILLIGRAM, BID
     Route: 065
  10. IFOSFAMIDE. [Suspect]
     Active Substance: IFOSFAMIDE
     Indication: EWING^S SARCOMA
     Dosage: 3 G/M2, DAY 1-3, PER OS 40% OF IFOSFAMIDE
     Route: 048
  11. UROMITEXAN [Suspect]
     Active Substance: MESNA
     Indication: EWING^S SARCOMA
     Dosage: CYCLE DAY 1-3 (INTRAVENOUS 20% OF IFOSFAMIDE DOSE, PER OS 40% OF IFOSFAMIDE DOSE 2 AND 8 H)
     Route: 042

REACTIONS (4)
  - Stomatitis [Recovered/Resolved]
  - Exposure during pregnancy [Unknown]
  - Anaemia [Unknown]
  - Nausea [Unknown]
